FAERS Safety Report 8575526-X (Version None)
Quarter: 2012Q3

REPORT INFORMATION
  Report Type: 
  Country: None (occurrence: None)
  Receive Date: 20120807
  Receipt Date: 20120802
  Transmission Date: 20120928
  Serious: Yes (Hospitalization, Other)
  Sender: FDA-Public Use
  Company Number: PHHY2012CA050028

PATIENT
  Sex: Female

DRUGS (2)
  1. SANDOSTATIN LAR [Suspect]
     Indication: ANGIODYSPLASIA
     Dosage: 10 MG, ONCE IN A MONTH
     Route: 030
     Dates: start: 20120203
  2. SANDOSTATIN LAR [Suspect]
     Dosage: 20 MG, ONCE IN A MONTH
     Route: 030

REACTIONS (6)
  - MUSCULOSKELETAL CHEST PAIN [None]
  - RIB FRACTURE [None]
  - DYSPNOEA [None]
  - ATRIAL FIBRILLATION [None]
  - PAIN [None]
  - TRAUMATIC LUNG INJURY [None]
